FAERS Safety Report 8274696-0 (Version None)
Quarter: 2012Q2

REPORT INFORMATION
  Report Type: 
  Country: None (occurrence: None)
  Receive Date: 20120411
  Receipt Date: 20120330
  Transmission Date: 20120825
  Serious: Yes (Death, Hospitalization)
  Sender: FDA-Public Use
  Company Number: JP-ACTELION-A-CH2012-62501

PATIENT
  Age: 80 Year
  Sex: Female

DRUGS (1)
  1. TRACLEER [Suspect]
     Indication: PULMONARY ARTERIAL HYPERTENSION
     Dosage: 62.5 MG, BID
     Route: 048
     Dates: start: 20120118, end: 20120101

REACTIONS (4)
  - PULMONARY ARTERIAL HYPERTENSION [None]
  - PNEUMONIA ASPIRATION [None]
  - CONDITION AGGRAVATED [None]
  - CARDIAC FAILURE [None]
